FAERS Safety Report 8407464-7 (Version None)
Quarter: 2012Q2

REPORT INFORMATION
  Report Type: 
  Country: None (occurrence: None)
  Receive Date: 20120604
  Receipt Date: 20120530
  Transmission Date: 20120825
  Serious: Yes (Death)
  Sender: FDA-Public Use
  Company Number: GB-ABBOTT-12P-167-0902191-00

PATIENT
  Sex: Female

DRUGS (1)
  1. HUMIRA [Suspect]
     Indication: RHEUMATOID ARTHRITIS
     Route: 058
     Dates: start: 20041204, end: 20051115

REACTIONS (10)
  - LEFT VENTRICULAR FAILURE [None]
  - MYOCARDITIS [None]
  - DUODENAL ULCER [None]
  - HYPERTENSION [None]
  - CHRONIC OBSTRUCTIVE PULMONARY DISEASE [None]
  - SKIN ULCER [None]
  - RHEUMATOID ARTHRITIS [None]
  - MENTAL DISORDER [None]
  - PERICARDITIS [None]
  - PARKINSON'S DISEASE [None]
